FAERS Safety Report 13071064 (Version 2)
Quarter: 2017Q1

REPORT INFORMATION
  Report Type: Spontaneous
  Country: DE (occurrence: DE)
  Receive Date: 20161229
  Receipt Date: 20170120
  Transmission Date: 20170428
  Serious: Yes (Other)
  Sender: FDA-Public Use
  Company Number: DE-009507513-1612DEU014266

PATIENT
  Age: 34 Year
  Sex: Female

DRUGS (21)
  1. VESANOID [Suspect]
     Active Substance: TRETINOIN
     Indication: ACUTE PROMYELOCYTIC LEUKAEMIA
     Dosage: 30 MG, TID
     Route: 048
     Dates: start: 20160308, end: 20160530
  2. CIPROFLOXACIN. [Concomitant]
     Active Substance: CIPROFLOXACIN
     Indication: ANTIBIOTIC PROPHYLAXIS
     Dosage: 500 MG, BID; WAS PLANED IF NEUTROPHILS ARE { 500 /MICRO-L
     Route: 048
  3. NOXAFIL [Suspect]
     Active Substance: POSACONAZOLE
     Indication: ANTIFUNGAL PROPHYLAXIS
     Dosage: 200 MG, TID; WAS PLANNED FOR MARCH, 23RD, ALTERNATIVELY DISCUSSED DRUG: DIFLUCAN
     Route: 048
  4. DAUNORUBICIN [Suspect]
     Active Substance: DAUNORUBICIN
     Indication: ACUTE PROMYELOCYTIC LEUKAEMIA
     Dosage: 120 MG, QD
     Route: 042
     Dates: start: 20160308, end: 20160530
  5. ACYCLOVIR. [Concomitant]
     Active Substance: ACYCLOVIR
     Indication: ANTIVIRAL PROPHYLAXIS
     Dosage: 400 MG, BID
     Route: 048
     Dates: start: 20160308, end: 20160317
  6. METOCLOPRAMIDE HYDROCHLORIDE. [Concomitant]
     Active Substance: METOCLOPRAMIDE HYDROCHLORIDE
     Indication: PROPHYLAXIS OF NAUSEA AND VOMITING
     Dosage: ON DEMAND
     Route: 042
  7. DIFLUCAN [Suspect]
     Active Substance: FLUCONAZOLE
     Indication: ANTIFUNGAL PROPHYLAXIS
     Dosage: 400 MG, QD; DISCUSSED AS ALTERNATIVE TO NOXAFIL. PLANNED FROM MARCH, 18TH
     Route: 048
  8. PROGESTAN [Concomitant]
     Active Substance: PROGESTERONE
     Indication: PROPHYLAXIS OF ABORTION
     Dosage: 100 MG, BID
     Route: 067
     Dates: start: 20151115, end: 20160317
  9. ALLOPURINOL. [Suspect]
     Active Substance: ALLOPURINOL
     Indication: ACUTE PROMYELOCYTIC LEUKAEMIA
     Dosage: 300 MG, QD
     Route: 048
     Dates: start: 20160317, end: 20160317
  10. AMPHO MORONAL [Concomitant]
     Active Substance: AMPHOTERICIN B
     Indication: ANTIFUNGAL PROPHYLAXIS
     Dosage: UNK
     Route: 048
     Dates: start: 20160308, end: 20160317
  11. PROGYNOVA [Concomitant]
     Active Substance: ESTRADIOL VALERATE
     Indication: PROPHYLAXIS OF ABORTION
     Dosage: 2 MG, QD
     Route: 048
     Dates: start: 20151115, end: 20160317
  12. COTRIM FORTE [Concomitant]
     Active Substance: SULFAMETHOXAZOLE\TRIMETHOPRIM
     Indication: ANTIFUNGAL PROPHYLAXIS
     Dosage: 800/160 MG, 3XWEEK
     Route: 048
  13. ROCEPHIN [Concomitant]
     Active Substance: CEFTRIAXONE SODIUM
     Indication: ANTIBIOTIC PROPHYLAXIS
     Dosage: 2 G, QD
     Route: 042
     Dates: start: 20160308, end: 20160317
  14. PANTOZOL [Concomitant]
     Active Substance: PANTOPRAZOLE SODIUM
     Indication: GASTRITIS PROPHYLAXIS
     Dosage: 40 MG, QD
     Route: 042
     Dates: start: 20160308, end: 20160317
  15. THYROXIN [Concomitant]
     Active Substance: LEVOTHYROXINE
     Indication: HYPOTHYROIDISM
     Dosage: 75 MICROGRAM, QD
     Route: 048
     Dates: start: 20151115, end: 20160317
  16. BETAMETHASONE. [Concomitant]
     Active Substance: BETAMETHASONE
     Route: 065
  17. ZOFRAN [Concomitant]
     Active Substance: ONDANSETRON HYDROCHLORIDE
     Indication: PROPHYLAXIS OF NAUSEA AND VOMITING
     Dosage: 8 MG, TID
     Route: 042
  18. MAGNESIUM VERLA (MAGNESIUM ASPARTATE (+) MAGNESIUM CITRATE (+) MAGNESI [Concomitant]
     Indication: PROPHYLAXIS OF ABORTION
     Dosage: UNK
     Route: 048
     Dates: start: 20160317, end: 20160317
  19. CYTARABINE. [Suspect]
     Active Substance: CYTARABINE
     Indication: ACUTE PROMYELOCYTIC LEUKAEMIA
     Dosage: 400 MG, QD
     Route: 042
     Dates: start: 20160308, end: 20160314
  20. VOMEX A [Concomitant]
     Active Substance: DIMENHYDRINATE
     Indication: PROPHYLAXIS OF NAUSEA AND VOMITING
     Dosage: PERHAPS LONGER THERAOY
     Route: 042
     Dates: start: 20160308, end: 20160317
  21. CLEXANE (ENOXAPARIN SODIUM) [Concomitant]
     Active Substance: ENOXAPARIN SODIUM
     Indication: THROMBOSIS PROPHYLAXIS
     Dosage: TERMINATED BEFORE WEEK 17 4/7
     Route: 058

REACTIONS (4)
  - Maternal exposure during delivery [Recovered/Resolved]
  - Placental insufficiency [Unknown]
  - Premature delivery [Unknown]
  - Caesarean section [Unknown]

NARRATIVE: CASE EVENT DATE: 2016
